FAERS Safety Report 11250609 (Version 1)
Quarter: 2015Q3

REPORT INFORMATION
  Report Type: Spontaneous
  Country: US (occurrence: US)
  Receive Date: 20150708
  Receipt Date: 20150708
  Transmission Date: 20151125
  Serious: Yes (Hospitalization, Other)
  Sender: FDA-Public Use
  Company Number: US-ELI_LILLY_AND_COMPANY-US201102001437

PATIENT
  Age: 49 Year
  Weight: 65 kg

DRUGS (5)
  1. NEULASTA [Concomitant]
     Active Substance: PEGFILGRASTIM
     Indication: CHEMOTHERAPY
     Dosage: 6 MG, UNK
     Dates: start: 20100704, end: 20100725
  2. CARBOPLATIN. [Concomitant]
     Active Substance: CARBOPLATIN
     Dates: start: 20100702, end: 20100723
  3. INNOHEP [Concomitant]
     Active Substance: TINZAPARIN SODIUM
     Dosage: 0.6 ML, DAILY (1/D)
     Dates: end: 20100824
  4. ALIMTA [Suspect]
     Active Substance: PEMETREXED DISODIUM
     Dosage: 500 MG, UNK
     Dates: start: 20100702, end: 20100723
  5. EMEND [Concomitant]
     Active Substance: APREPITANT
     Dosage: 80 MG, UNK

REACTIONS (3)
  - General physical health deterioration [Unknown]
  - Metastases to central nervous system [Unknown]
  - Acute kidney injury [Unknown]
